FAERS Safety Report 16666832 (Version 1)
Quarter: 2019Q3

REPORT INFORMATION
  Report Type: Spontaneous
  Country: US (occurrence: US)
  Receive Date: 20190805
  Receipt Date: 20190805
  Transmission Date: 20191004
  Serious: No
  Sender: FDA-Public Use
  Company Number: US-ACCORD-069843

PATIENT
  Age: 81 Year
  Sex: Female
  Weight: 73.12 kg

DRUGS (1)
  1. ANASTROZOLE. [Suspect]
     Active Substance: ANASTROZOLE
     Indication: PROPHYLAXIS
     Route: 048
     Dates: start: 201804, end: 201805

REACTIONS (2)
  - Drug intolerance [Unknown]
  - Product physical issue [Unknown]
